FAERS Safety Report 5127488-5 (Version None)
Quarter: 2006Q4

REPORT INFORMATION
  Report Type: 
  Country: None (occurrence: None)
  Receive Date: 20061010
  Receipt Date: 20060926
  Transmission Date: 20070319
  Serious: Yes (Other)
  Sender: FDA-Public Use
  Company Number: 2006104981

PATIENT
  Age: 52 Year
  Sex: Male

DRUGS (3)
  1. FELDENE [Suspect]
     Indication: BACK PAIN
     Dosage: 20 MG (20 MG, 1 IN 1 D), SUBLINGUAL
     Route: 060
     Dates: start: 20060201, end: 20060819
  2. FELDENE [Suspect]
     Indication: PHARYNGOLARYNGEAL PAIN
     Dosage: 20 MG (20 MG, 1 IN 1 D), SUBLINGUAL
     Route: 060
     Dates: start: 20060201, end: 20060819
  3. ENALAPRIL MALEATE [Concomitant]

REACTIONS (12)
  - BLISTER [None]
  - DRUG HYPERSENSITIVITY [None]
  - EAR DISORDER [None]
  - ERYTHEMA [None]
  - EYE DISORDER [None]
  - FACE OEDEMA [None]
  - HERPES VIRUS INFECTION [None]
  - HYPERSENSITIVITY [None]
  - PALATAL DISORDER [None]
  - PENIS DISORDER [None]
  - RECTAL TENESMUS [None]
  - SKIN LESION [None]
